FAERS Safety Report 4619571-5 (Version None)
Quarter: 2005Q2

REPORT INFORMATION
  Report Type: 
  Country: None (occurrence: None)
  Receive Date: 20050321
  Receipt Date: 20040527
  Transmission Date: 20051028
  Serious: Yes (Other)
  Sender: FDA-Public Use
  Company Number: 2004-05-2316

PATIENT
  Sex: Female
  Weight: 111.1313 kg

DRUGS (2)
  1. PEG-INTRON [Suspect]
     Indication: HEPATIC CIRRHOSIS
     Dosage: ^1 CC^ SUBCUTANEOUS
     Route: 058
  2. RIBAVIRIN [Suspect]
     Indication: HEPATIC CIRRHOSIS
     Dosage: 1000 MG ORAL
     Route: 048

REACTIONS (1)
  - FULL BLOOD COUNT DECREASED [None]
